FAERS Safety Report 6492391-5 (Version None)
Quarter: 2009Q4

REPORT INFORMATION
  Report Type: 
  Country: None (occurrence: None)
  Receive Date: 20091214
  Receipt Date: 20091204
  Transmission Date: 20100525
  Serious: Yes (Death, Other)
  Sender: FDA-Public Use
  Company Number: US-ROCHE-498823

PATIENT
  Sex: Female
  Weight: 68 kg

DRUGS (3)
  1. BONIVA [Suspect]
     Indication: OSTEOPOROSIS
     Dosage: REPORTED AS DAILY
     Route: 048
  2. BONIVA [Suspect]
     Route: 048
  3. MULTIPLE UNSPECIFIED MEDICATIONS [Concomitant]

REACTIONS (3)
  - DEATH [None]
  - GASTROOESOPHAGEAL CANCER [None]
  - PANCREATIC CARCINOMA [None]
